FAERS Safety Report 10989501 (Version 3)
Quarter: 2015Q2

REPORT INFORMATION
  Report Type: Report from Study
  Country: CA (occurrence: CA)
  Receive Date: 20150406
  Receipt Date: 20150527
  Transmission Date: 20150821
  Serious: Yes (Hospitalization, Other)
  Sender: FDA-Public Use
  Company Number: CA-ROCHE-1137327

PATIENT
  Age: 75 Year
  Sex: Female
  Weight: 54 kg

DRUGS (13)
  1. ACETAMINOPHEN. [Concomitant]
     Active Substance: ACETAMINOPHEN
     Route: 048
     Dates: start: 20120709
  2. CALCIUM CARBONATE. [Concomitant]
     Active Substance: CALCIUM CARBONATE
  3. RITUXAN [Suspect]
     Active Substance: RITUXIMAB
     Indication: RHEUMATOID ARTHRITIS
     Route: 042
     Dates: start: 20120709
  4. PREDNISONE. [Concomitant]
     Active Substance: PREDNISONE
  5. DIPHENHYDRAMINE HCL [Concomitant]
     Active Substance: DIPHENHYDRAMINE HYDROCHLORIDE
     Route: 048
     Dates: start: 20120709
  6. LEFLUNOMIDE. [Concomitant]
     Active Substance: LEFLUNOMIDE
  7. MYOCHRYSINE [Concomitant]
     Active Substance: GOLD SODIUM THIOMALATE
  8. ACETAMINOPHEN. [Concomitant]
     Active Substance: ACETAMINOPHEN
     Indication: PREMEDICATION
     Route: 048
     Dates: start: 20120723, end: 20120723
  9. METHYLPREDNISOLONE. [Concomitant]
     Active Substance: METHYLPREDNISOLONE
     Indication: PREMEDICATION
     Route: 042
     Dates: start: 20120723, end: 20120723
  10. METHYLPREDNISOLONE. [Concomitant]
     Active Substance: METHYLPREDNISOLONE
     Route: 042
     Dates: start: 20120709
  11. DIPHENHYDRAMINE HCL [Concomitant]
     Active Substance: DIPHENHYDRAMINE HYDROCHLORIDE
     Indication: PREMEDICATION
     Route: 048
     Dates: start: 20120723, end: 20120723
  12. ALENDRONATE [Concomitant]
     Active Substance: ALENDRONATE SODIUM
  13. PANTOPRAZOLE [Concomitant]
     Active Substance: PANTOPRAZOLE SODIUM

REACTIONS (12)
  - Headache [Recovered/Resolved]
  - Pyrexia [Recovered/Resolved]
  - Flushing [Recovered/Resolved]
  - Limb injury [Recovered/Resolved]
  - Musculoskeletal stiffness [Unknown]
  - Fall [Recovered/Resolved]
  - Infusion related reaction [Unknown]
  - White blood cell count increased [Unknown]
  - Urinary tract infection [Unknown]
  - Arthralgia [Unknown]
  - Neutrophil count increased [Unknown]
  - Dizziness [Recovered/Resolved]

NARRATIVE: CASE EVENT DATE: 20120710
